FAERS Safety Report 16927960 (Version 1)
Quarter: 2019Q4

REPORT INFORMATION
  Report Type: Spontaneous
  Country: US (occurrence: US)
  Receive Date: 20191017
  Receipt Date: 20191017
  Transmission Date: 20200122
  Serious: Yes (Hospitalization, Other)
  Sender: FDA-Public Use
  Company Number: US-AMGEN-USASP2019171100

PATIENT

DRUGS (5)
  1. FILGRASTIM [Suspect]
     Active Substance: FILGRASTIM
     Indication: HAEMATOPOIETIC STEM CELL MOBILISATION
     Dosage: 5-10 MICROGRAM/KG/DAY
     Route: 058
  2. THYMOGLOBULIN [Concomitant]
     Active Substance: LAPINE T-LYMPHOCYTE IMMUNE GLOBULIN
     Indication: STEM CELL TRANSPLANT
     Dosage: 500 MILLIGRAM
     Route: 042
  3. CYCLOPHOSPHAMIDE. [Concomitant]
     Active Substance: CYCLOPHOSPHAMIDE
     Indication: STEM CELL TRANSPLANT
     Dosage: UNK
     Route: 042
  4. METHYLPREDNISOLONE. [Concomitant]
     Active Substance: METHYLPREDNISOLONE
     Indication: STEM CELL TRANSPLANT
     Dosage: 1000 MILLIGRAM, 30 MINUTES PRIOR TO RATG INFUSION
     Route: 042
  5. MESNA. [Concomitant]
     Active Substance: MESNA
     Indication: STEM CELL TRANSPLANT
     Dosage: UNK
     Route: 042

REACTIONS (21)
  - Nausea [Unknown]
  - Hypophosphataemia [Unknown]
  - Herpes zoster [Unknown]
  - Urinary tract infection [Unknown]
  - Orthostatic hypotension [Unknown]
  - Vomiting [Unknown]
  - Hypertension [Unknown]
  - Hypogammaglobulinaemia [Unknown]
  - Pneumonia [Unknown]
  - Cholecystectomy [Unknown]
  - Hyperglycaemia [Unknown]
  - Hyperthyroidism [Unknown]
  - Hypokalaemia [Unknown]
  - Shoulder operation [Unknown]
  - Hypocalcaemia [Unknown]
  - Influenza [Unknown]
  - Upper respiratory tract infection [Unknown]
  - Clostridium difficile colitis [Unknown]
  - Febrile neutropenia [Unknown]
  - Myasthenia gravis [Unknown]
  - Pharyngitis streptococcal [Unknown]
